FAERS Safety Report 4366754-8 (Version None)
Quarter: 2004Q2

REPORT INFORMATION
  Report Type: 
  Country: None (occurrence: None)
  Receive Date: 20040524
  Receipt Date: 20040511
  Transmission Date: 20050107
  Serious: Yes (Hospitalization)
  Sender: FDA-Public Use
  Company Number: 2003031653

PATIENT
  Sex: Female
  Weight: 37 kg

DRUGS (5)
  1. VIAGRA [Suspect]
     Indication: PULMONARY HYPERTENSION
     Dosage: 25 MG (DAILY), ORAL
     Route: 048
  2. PERINDOPRIL (PERINDOPRIL) [Concomitant]
  3. FUROSEMIDE [Concomitant]
  4. METOPROLOL (METOPROLOL) [Concomitant]
  5. WARFARIN SODIUM [Concomitant]

REACTIONS (5)
  - FEMORAL ARTERIAL STENOSIS [None]
  - OEDEMA PERIPHERAL [None]
  - SKIN ULCER [None]
  - TREATMENT NONCOMPLIANCE [None]
  - VASCULAR CALCIFICATION [None]
